FAERS Safety Report 8061109-7 (Version None)
Quarter: 2012Q1

REPORT INFORMATION
  Report Type: 
  Country: None (occurrence: None)
  Receive Date: 20120120
  Receipt Date: 20110408
  Transmission Date: 20120608
  Serious: No
  Sender: FDA-Public Use
  Company Number: US-ALLERGAN-1104974US

PATIENT
  Age: 69 Year
  Sex: Female

DRUGS (2)
  1. XALATAN [Concomitant]
     Indication: GLAUCOMA
  2. RESTASIS [Suspect]
     Indication: DRY EYE
     Dosage: 1 GTT, BID
     Route: 047

REACTIONS (2)
  - VISION BLURRED [None]
  - ABNORMAL SENSATION IN EYE [None]
